FAERS Safety Report 18031100 (Version 5)
Quarter: 2022Q1

REPORT INFORMATION
  Report Type: Report from Study
  Country: US (occurrence: US)
  Receive Date: 20200715
  Receipt Date: 20220120
  Transmission Date: 20220423
  Serious: Yes (Hospitalization, Other)
  Sender: FDA-Public Use
  Company Number: US-ABBVIE-20K-163-3361524-00

PATIENT
  Sex: Male

DRUGS (4)
  1. HUMIRA [Suspect]
     Active Substance: ADALIMUMAB
     Indication: Colitis ulcerative
     Route: 058
  2. HUMIRA [Suspect]
     Active Substance: ADALIMUMAB
     Indication: Colitis ulcerative
     Dosage: CITRATE FREE
     Route: 058
  3. PFIZER-BIONTECH COVID-19 VACCINE [Concomitant]
     Active Substance: TOZINAMERAN
     Indication: COVID-19 immunisation
     Route: 030
     Dates: start: 20210816, end: 20210816
  4. PFIZER-BIONTECH COVID-19 VACCINE [Concomitant]
     Active Substance: TOZINAMERAN
     Route: 030
     Dates: start: 20210907, end: 20210907

REACTIONS (12)
  - Concussion [Recovered/Resolved]
  - Cardiac disorder [Unknown]
  - Stent placement [Unknown]
  - Abdominal pain upper [Not Recovered/Not Resolved]
  - Colitis [Recovered/Resolved]
  - Wrong technique in product usage process [Unknown]
  - Lethargy [Not Recovered/Not Resolved]
  - Mobility decreased [Unknown]
  - Head injury [Unknown]
  - Gait disturbance [Unknown]
  - Memory impairment [Recovering/Resolving]
  - COVID-19 [Recovered/Resolved]

NARRATIVE: CASE EVENT DATE: 20170101
